FAERS Safety Report 8399528-1 (Version None)
Quarter: 2012Q2

REPORT INFORMATION
  Report Type: 
  Country: None (occurrence: None)
  Receive Date: 20120531
  Receipt Date: 20120516
  Transmission Date: 20120825
  Serious: Yes (Hospitalization, Other)
  Sender: FDA-Public Use
  Company Number: US-MERCK-1201USA02558

PATIENT
  Age: 52 Year
  Sex: Female
  Weight: 61 kg

DRUGS (17)
  1. FOSAMAX [Suspect]
     Indication: OSTEOPOROSIS
     Route: 048
     Dates: start: 20030101, end: 20080101
  2. REVLIMID [Concomitant]
     Indication: MYELODYSPLASTIC SYNDROME
     Route: 065
     Dates: start: 20040201, end: 20040601
  3. FOSAMAX [Suspect]
     Route: 048
     Dates: start: 20080101, end: 20090101
  4. REVIMID [Concomitant]
     Indication: MYELODYSPLASTIC SYNDROME
     Route: 065
  5. REVLIMID [Concomitant]
     Route: 065
     Dates: start: 20060701, end: 20070501
  6. CALCIUM (UNSPECIFIED) [Concomitant]
     Indication: OSTEOPENIA
     Route: 065
     Dates: start: 20030101
  7. EXJADE [Concomitant]
     Indication: MYELODYSPLASTIC SYNDROME
     Route: 065
  8. VITAMINS (UNSPECIFIED) [Concomitant]
     Indication: OSTEOPOROSIS
     Route: 065
  9. FOSAMAX [Suspect]
     Indication: OSTEOPENIA
     Route: 048
     Dates: start: 20030101, end: 20080101
  10. VITAMIN D (UNSPECIFIED) [Concomitant]
     Indication: OSTEOPOROSIS
     Route: 065
  11. PREMPRO [Concomitant]
     Indication: OSTEOPOROSIS
     Route: 065
     Dates: start: 20030101, end: 20080101
  12. BACTROBAN [Concomitant]
     Indication: TRANSFUSION
     Route: 065
  13. DEXTRAN [Concomitant]
     Indication: MYELODYSPLASTIC SYNDROME
     Route: 065
  14. FOSAMAX [Suspect]
     Route: 048
     Dates: start: 20080101, end: 20090101
  15. CALCIUM (UNSPECIFIED) AND VITAMIN D (UNSPECIFIED) [Concomitant]
     Indication: OSTEOPOROSIS
     Route: 065
  16. DESFERAL [Concomitant]
     Route: 065
  17. SYNTHROID [Concomitant]
     Indication: HYPOTHYROIDISM
     Route: 048
     Dates: start: 20000101

REACTIONS (35)
  - BLINDNESS TRANSIENT [None]
  - LEUKOPENIA [None]
  - TRISOMY 18 [None]
  - EATING DISORDER [None]
  - ARTHROPATHY [None]
  - NAUSEA [None]
  - INSOMNIA [None]
  - OROPHARYNGEAL PAIN [None]
  - URINARY TRACT INFECTION [None]
  - CHOLECYSTITIS [None]
  - INJECTION SITE PAIN [None]
  - PRESYNCOPE [None]
  - DECREASED APPETITE [None]
  - DEPRESSION [None]
  - BONE MARROW FAILURE [None]
  - LOW TURNOVER OSTEOPATHY [None]
  - HAEMOSIDEROSIS [None]
  - NEUTROPHIL COUNT [None]
  - CHILLS [None]
  - FEMUR FRACTURE [None]
  - ADVERSE DRUG REACTION [None]
  - BONE MARROW DISORDER [None]
  - FOOT FRACTURE [None]
  - HAEMATOCRIT ABNORMAL [None]
  - IRON OVERLOAD [None]
  - ANTICOAGULATION DRUG LEVEL BELOW THERAPEUTIC [None]
  - BLOOD POTASSIUM ABNORMAL [None]
  - ABDOMINAL MASS [None]
  - BLEPHARITIS [None]
  - BLOOD CALCIUM [None]
  - SKIN PAPILLOMA [None]
  - POOR QUALITY SLEEP [None]
  - RESPIRATORY TRACT INFECTION [None]
  - BLOOD GLUCOSE ABNORMAL [None]
  - FALL [None]
